FAERS Safety Report 7424640-0 (Version None)
Quarter: 2011Q2

REPORT INFORMATION
  Report Type: 
  Country: None (occurrence: None)
  Receive Date: 20110419
  Receipt Date: 20110415
  Transmission Date: 20111010
  Serious: Yes (Other)
  Sender: FDA-Public Use
  Company Number: BR-PFIZER INC-2011084072

PATIENT
  Age: 76 Year
  Sex: Male
  Weight: 67 kg

DRUGS (2)
  1. LYRICA [Suspect]
     Dosage: 2 OF 150MG DAILY
     Route: 048
     Dates: start: 20110324, end: 20110401
  2. LYRICA [Suspect]
     Indication: MERALGIA PARAESTHETICA
     Dosage: 2 OF 75 MG DAILY, UNK
     Route: 048
     Dates: start: 20110224, end: 20110301

REACTIONS (5)
  - LIMB INJURY [None]
  - PAIN [None]
  - OEDEMA PERIPHERAL [None]
  - DIZZINESS [None]
  - FALL [None]
